FAERS Safety Report 5702639-X (Version None)
Quarter: 2008Q2

REPORT INFORMATION
  Report Type: 
  Country: None (occurrence: None)
  Receive Date: 20080411
  Receipt Date: 20080401
  Transmission Date: 20081010
  Serious: Yes (Other)
  Sender: FDA-Public Use
  Company Number: US-BAYER-200813063NA

PATIENT
  Age: 22 Year
  Sex: Male

DRUGS (1)
  1. LEVITRA [Suspect]
     Route: 048
     Dates: start: 20080203

REACTIONS (1)
  - ERECTION INCREASED [None]
